FAERS Safety Report 11350392 (Version 1)
Quarter: 2015Q3

REPORT INFORMATION
  Report Type: Spontaneous
  Country: IT (occurrence: IT)
  Receive Date: 20150807
  Receipt Date: 20150807
  Transmission Date: 20151125
  Serious: Yes (Hospitalization)
  Sender: FDA-Public Use
  Company Number: IT-TEVA-583475ACC

PATIENT
  Age: 52 Year
  Sex: Female

DRUGS (4)
  1. OMEPRAZEN [Concomitant]
     Active Substance: OMEPRAZOLE
     Indication: PRODUCT USED FOR UNKNOWN INDICATION
  2. LEDERFOLIN [Concomitant]
     Active Substance: LEUCOVORIN CALCIUM
     Indication: PRODUCT USED FOR UNKNOWN INDICATION
  3. METOTRESSATO TEVA - 100 MG/ML SOLUZIONE INIETTABILE - TEVA ITALIA S.R. [Suspect]
     Active Substance: METHOTREXATE SODIUM
     Indication: B-CELL UNCLASSIFIABLE LYMPHOMA LOW GRADE
     Dosage: 5810 MG CYCLICAL
     Route: 041
     Dates: start: 20150708, end: 20150720
  4. SOLDESAM [Concomitant]
     Active Substance: DEXAMETHASONE
     Indication: PRODUCT USED FOR UNKNOWN INDICATION

REACTIONS (1)
  - Febrile neutropenia [Recovering/Resolving]

NARRATIVE: CASE EVENT DATE: 20150727
